FAERS Safety Report 24615208 (Version 4)
Quarter: 2025Q3

REPORT INFORMATION
  Report Type: Report from Study
  Country: CN (occurrence: CN)
  Receive Date: 20241113
  Receipt Date: 20250819
  Transmission Date: 20251021
  Serious: Yes (Hospitalization, Other)
  Sender: ALEXION PHARMACEUTICALS
  Company Number: CN-ALXN-202411GLO004030CN

PATIENT
  Age: 51 Year
  Sex: Male
  Weight: 56.7 kg

DRUGS (1)
  1. SOLIRIS [Suspect]
     Active Substance: ECULIZUMAB
     Indication: Atypical haemolytic uraemic syndrome
     Dosage: 900 MILLIGRAM, QW
     Dates: start: 20241018

REACTIONS (1)
  - Disseminated intravascular coagulation [Recovering/Resolving]

NARRATIVE: CASE EVENT DATE: 20241102
